FAERS Safety Report 11857649 (Version 1)
Quarter: 2015Q4

REPORT INFORMATION
  Report Type: Spontaneous
  Country: US (occurrence: None)
  Receive Date: 20151221
  Receipt Date: 20151221
  Transmission Date: 20160305
  Serious: Yes (Other)
  Sender: FDA-Public Use
  Company Number: None

PATIENT

DRUGS (1)
  1. DOPAMINE [Suspect]
     Active Substance: DOPAMINE\DOPAMINE HYDROCHLORIDE
     Indication: CARDIOVASCULAR DISORDER
     Dosage: 1 BAG  CONTNUOUS INFUSION?MONTHS
     Route: 042

REACTIONS (3)
  - Circumstance or information capable of leading to medication error [None]
  - Product packaging issue [None]
  - Product label confusion [None]

NARRATIVE: CASE EVENT DATE: 20151216
